FAERS Safety Report 21090436 (Version 2)
Quarter: 2022Q3

REPORT INFORMATION
  Report Type: Spontaneous
  Country: US (occurrence: US)
  Receive Date: 20220715
  Receipt Date: 20220910
  Transmission Date: 20221026
  Serious: No
  Sender: FDA-Public Use
  Company Number: US-NOVARTISTESTPH-NVSC2022US160534

PATIENT
  Age: 47 Year
  Sex: Male

DRUGS (2)
  1. LATANOPROST [Suspect]
     Active Substance: LATANOPROST
     Indication: Product used for unknown indication
     Dosage: 1 DRP, QD, (1 DROP IN EACH EYE EVERY NIGHT) (SOLUTION, VOLUME 2.5 ML)
     Route: 065
  2. LATANOPROST [Suspect]
     Active Substance: LATANOPROST
     Dosage: 1 DRP, QD, (1 DROP IN EACH EYE EVERY NIGHT)
     Route: 065

REACTIONS (2)
  - Eye disorder [Unknown]
  - Intraocular pressure increased [Unknown]

NARRATIVE: CASE EVENT DATE: 20220624
